FAERS Safety Report 14389164 (Version 3)
Quarter: 2019Q4

REPORT INFORMATION
  Report Type: Spontaneous
  Country: US (occurrence: US)
  Receive Date: 20180115
  Receipt Date: 20191115
  Transmission Date: 20200122
  Serious: Yes (Other)
  Sender: FDA-Public Use
  Company Number: US-SA-2017SA235182

PATIENT
  Age: 48 Year
  Sex: Female
  Weight: 88 kg

DRUGS (10)
  1. PARAPLATIN [Concomitant]
     Active Substance: CARBOPLATIN
     Indication: BREAST CANCER FEMALE
     Dosage: UNK UNK, UNK
     Route: 065
     Dates: start: 20090325, end: 20160120
  2. AROMASIN [Concomitant]
     Active Substance: EXEMESTANE
     Dosage: UNK, UNK
     Route: 065
     Dates: start: 20050101
  3. POTASSIUM [Concomitant]
     Active Substance: POTASSIUM
     Dosage: UNK UNK, UNK
     Route: 065
     Dates: start: 20050101
  4. TAXOTERE [Suspect]
     Active Substance: DOCETAXEL
     Indication: BREAST CANCER FEMALE
     Dosage: 161 MG, Q3W
     Route: 042
     Dates: start: 20090325, end: 20090325
  5. TAXOTERE [Suspect]
     Active Substance: DOCETAXEL
     Dosage: 161 MG, Q3W
     Route: 042
     Dates: start: 20160120, end: 20160120
  6. TAMOXIFEN [Concomitant]
     Active Substance: TAMOXIFEN
     Dosage: UNK, UNK
     Route: 065
     Dates: start: 20050101
  7. HERCEPTIN [Concomitant]
     Active Substance: TRASTUZUMAB
     Indication: BREAST CANCER FEMALE
     Dosage: UNK UNK, UNK
     Route: 065
     Dates: start: 20090325, end: 20160120
  8. PERJETA [Concomitant]
     Active Substance: PERTUZUMAB
     Dosage: UNK UNK, UNK
     Route: 065
     Dates: start: 20050101
  9. VITAMIN D [COLECALCIFEROL] [Concomitant]
     Active Substance: CHOLECALCIFEROL
     Dosage: UNK UNK, UNK
     Route: 065
     Dates: start: 20020101
  10. DYAZIDE [Concomitant]
     Active Substance: HYDROCHLOROTHIAZIDE\TRIAMTERENE
     Dosage: UNK UNK, UNK
     Route: 065
     Dates: start: 20050101, end: 20161231

REACTIONS (4)
  - Psychological trauma [Unknown]
  - Alopecia [Not Recovered/Not Resolved]
  - Emotional distress [Unknown]
  - Anxiety [Unknown]

NARRATIVE: CASE EVENT DATE: 201607
